FAERS Safety Report 26215774 (Version 1)
Quarter: 2025Q4

REPORT INFORMATION
  Report Type: Spontaneous
  Country: CN (occurrence: CN)
  Receive Date: 20251231
  Receipt Date: 20251231
  Transmission Date: 20260117
  Serious: Yes (Death, Other)
  Sender: AMGEN
  Company Number: CN-AMGEN-CHNSP2025255414

PATIENT

DRUGS (3)
  1. TAVNEOS [Suspect]
     Active Substance: AVACOPAN
     Indication: Microscopic polyangiitis
     Dosage: UNK
     Route: 065
  2. TAVNEOS [Suspect]
     Active Substance: AVACOPAN
     Indication: Granulomatosis with polyangiitis
  3. TAVNEOS [Suspect]
     Active Substance: AVACOPAN
     Indication: Anti-neutrophil cytoplasmic antibody positive vasculitis

REACTIONS (40)
  - Infection [Fatal]
  - Pneumonia [Fatal]
  - Liver disorder [Fatal]
  - Headache [Fatal]
  - Drug-induced liver injury [Unknown]
  - Neoplasm [Unknown]
  - Fatigue [Unknown]
  - Diarrhoea [Unknown]
  - Rash [Unknown]
  - Abdominal discomfort [Unknown]
  - Hypertension [Unknown]
  - Alopecia [Unknown]
  - Abdominal pain upper [Unknown]
  - Cough [Unknown]
  - Swelling face [Unknown]
  - Blood pressure increased [Unknown]
  - Peripheral swelling [Unknown]
  - Swelling [Unknown]
  - Pollakiuria [Unknown]
  - Increased appetite [Unknown]
  - Blood pressure abnormal [Unknown]
  - Localised infection [Unknown]
  - Oesophageal disorder [Unknown]
  - Muscle atrophy [Unknown]
  - Pharyngeal swelling [Unknown]
  - Cardiac disorder [Unknown]
  - Hyperaesthesia teeth [Unknown]
  - Mental disorder [Unknown]
  - Lymphatic disorder [Unknown]
  - Eye disorder [Unknown]
  - Immune system disorder [Unknown]
  - Inner ear disorder [Unknown]
  - Blood creatinine increased [Unknown]
  - Blood alkaline phosphatase increased [Unknown]
  - Nausea [Unknown]
  - Hepatic function abnormal [Unknown]
  - Hepatic enzyme increased [Unknown]
  - Liver function test increased [Unknown]
  - Aspartate aminotransferase increased [Unknown]
  - Alanine aminotransferase increased [Unknown]
